FAERS Safety Report 11661559 (Version 2)
Quarter: 2015Q4

REPORT INFORMATION
  Report Type: Report from Study
  Country: FR (occurrence: FR)
  Receive Date: 20151026
  Receipt Date: 20151112
  Transmission Date: 20160304
  Serious: Yes (Death, Other)
  Sender: FDA-Public Use
  Company Number: FR-BRISTOL-MYERS SQUIBB COMPANY-BMS-2015-073079

PATIENT
  Age: 72 Year
  Sex: Male
  Weight: 72 kg

DRUGS (3)
  1. NIVOLUMAB [Suspect]
     Active Substance: NIVOLUMAB
     Indication: NON-SMALL CELL LUNG CANCER
     Dosage: 3 MG/KG, UNK
     Route: 065
     Dates: start: 20150810, end: 20151006
  2. NIVOLUMAB [Suspect]
     Active Substance: NIVOLUMAB
     Dosage: 216 MG, UNK
     Route: 065
     Dates: start: 20151006, end: 20151006
  3. NIVOLUMAB [Suspect]
     Active Substance: NIVOLUMAB
     Dosage: 246 MG, UNK
     Route: 065
     Dates: start: 20150810, end: 20151006

REACTIONS (1)
  - Death [Fatal]
